FAERS Safety Report 14256573 (Version 1)
Quarter: 2017Q4

REPORT INFORMATION
  Report Type: Spontaneous
  Country: FR (occurrence: FR)
  Receive Date: 20171206
  Receipt Date: 20171206
  Transmission Date: 20180321
  Serious: Yes (Other)
  Sender: FDA-Public Use
  Company Number: FR-BAYER-2017-229899

PATIENT
  Age: 80 Year
  Sex: Male
  Weight: 77 kg

DRUGS (1)
  1. STIVARGA [Suspect]
     Active Substance: REGORAFENIB
     Indication: COLORECTAL CANCER
     Dosage: 80 MG
     Dates: start: 201704, end: 201708

REACTIONS (8)
  - Colorectal cancer [None]
  - Therapeutic response unexpected [None]
  - Dysphonia [None]
  - Palmar-plantar erythrodysaesthesia syndrome [None]
  - Fatigue [None]
  - Rash [None]
  - Ageusia [None]
  - Off label use [None]

NARRATIVE: CASE EVENT DATE: 201704
